FAERS Safety Report 22343125 (Version 5)
Quarter: 2023Q2

REPORT INFORMATION
  Report Type: Spontaneous
  Country: CA (occurrence: CA)
  Receive Date: 20230519
  Receipt Date: 20230630
  Transmission Date: 20230721
  Serious: Yes (Other)
  Sender: FDA-Public Use
  Company Number: CA-CELLTRION INC.-2023CA009728

PATIENT

DRUGS (6)
  1. INFLECTRA [Suspect]
     Active Substance: INFLIXIMAB-DYYB
     Indication: Colitis ulcerative
     Dosage: 5 MG/KG WEEK 0,2,6 THEN Q 8 WEEKS (RECEIVED 410MG)
     Route: 042
     Dates: start: 20221011
  2. INFLECTRA [Suspect]
     Active Substance: INFLIXIMAB-DYYB
     Dosage: 5 MG/KG, EVERY 8 WEEK,  WEEK 0,2,6 THEN Q 8 WEEKS
     Route: 042
     Dates: start: 20221011, end: 20230510
  3. INFLECTRA [Suspect]
     Active Substance: INFLIXIMAB-DYYB
     Dosage: 5 MG/KG WEEK 0,2,6 THEN Q 8 WEEKS (RECEIVED 410MG)
     Route: 042
     Dates: start: 20221011
  4. INFLECTRA [Suspect]
     Active Substance: INFLIXIMAB-DYYB
     Dosage: 5 MG/KG WEEK 0,2,6 THEN Q 8 WEEKS (RECEIVED 410MG)
     Route: 042
     Dates: start: 20230316
  5. INFLECTRA [Suspect]
     Active Substance: INFLIXIMAB-DYYB
     Dosage: 5 MG/KG WEEK 0,2,6 THEN Q 8 WEEKS (RECEIVED 365MG)
     Route: 042
     Dates: start: 20230510
  6. INFLECTRA [Suspect]
     Active Substance: INFLIXIMAB-DYYB
     Dosage: 5 MG/KG EVERY 6 WEEK (365 MG, 6 WEEKS)
     Route: 042
     Dates: start: 20230621

REACTIONS (8)
  - Condition aggravated [Recovering/Resolving]
  - Drug ineffective [Unknown]
  - Fatigue [Not Recovered/Not Resolved]
  - Muscle spasms [Unknown]
  - Pruritus [Not Recovered/Not Resolved]
  - Miliaria [Not Recovered/Not Resolved]
  - Sensitive skin [Not Recovered/Not Resolved]
  - Off label use [Unknown]

NARRATIVE: CASE EVENT DATE: 20230101
